FAERS Safety Report 8391233-0 (Version None)
Quarter: 2012Q2

REPORT INFORMATION
  Report Type: 
  Country: None (occurrence: None)
  Receive Date: 20120517
  Receipt Date: 20120510
  Transmission Date: 20120825
  Serious: Yes (Hospitalization)
  Sender: FDA-Public Use
  Company Number: 2012SP009787

PATIENT
  Sex: Male

DRUGS (6)
  1. INTRON A [Suspect]
     Indication: MALIGNANT MELANOMA
     Dosage: 40 MIU; IV, 30 MIU; IV, 20 MIU, 15 MIU;TIW, 10 MIU; TIW, 10 MIU;TIW
     Route: 042
     Dates: start: 20111107
  2. INTRON A [Suspect]
     Indication: MALIGNANT MELANOMA
     Dosage: 40 MIU; IV, 30 MIU; IV, 20 MIU, 15 MIU;TIW, 10 MIU; TIW, 10 MIU;TIW
     Route: 042
     Dates: start: 20111117, end: 20111202
  3. INTRON A [Suspect]
     Indication: MALIGNANT MELANOMA
     Dosage: 40 MIU; IV, 30 MIU; IV, 20 MIU, 15 MIU;TIW, 10 MIU; TIW, 10 MIU;TIW
     Route: 042
     Dates: start: 20111205
  4. INTRON A [Suspect]
     Indication: MALIGNANT MELANOMA
     Dosage: 40 MIU; IV, 30 MIU; IV, 20 MIU, 15 MIU;TIW, 10 MIU; TIW, 10 MIU;TIW
     Route: 042
     Dates: start: 20120213
  5. INTRON A [Suspect]
     Indication: MALIGNANT MELANOMA
     Dosage: 40 MIU; IV, 30 MIU; IV, 20 MIU, 15 MIU;TIW, 10 MIU; TIW, 10 MIU;TIW
     Route: 042
     Dates: start: 20120113, end: 20120125
  6. LEVOTHYROXINE SODIUM [Concomitant]

REACTIONS (10)
  - HEPATIC ENZYME INCREASED [None]
  - RASH PRURITIC [None]
  - LYMPHOEDEMA [None]
  - THERMAL BURN [None]
  - NAUSEA [None]
  - PAIN [None]
  - CHILLS [None]
  - INFECTION [None]
  - PYREXIA [None]
  - ASTHENIA [None]
